FAERS Safety Report 4319692-0 (Version None)
Quarter: 2004Q1

REPORT INFORMATION
  Report Type: 
  Country: None (occurrence: None)
  Receive Date: 20040316
  Receipt Date: 20040305
  Transmission Date: 20041129
  Serious: Yes (Death)
  Sender: FDA-Public Use
  Company Number: 04H-163-0252513-00

PATIENT
  Age: 22 Year
  Sex: Male

DRUGS (3)
  1. DROPERIDOL INJECTION (DROPERIDOL) (DROPERIDOL) [Suspect]
     Indication: SEDATION
     Dosage: 10 MG, ONCE, INTRAMUSCULAR
     Route: 030
  2. PHENYCYCLIDINE [Suspect]
  3. TETRAHYDROCANNABINOL [Suspect]

REACTIONS (6)
  - COMA [None]
  - DRUG TOXICITY [None]
  - ELECTROMECHANICAL DISSOCIATION [None]
  - PULSE ABSENT [None]
  - RESPIRATORY DISORDER [None]
  - VENTRICULAR FIBRILLATION [None]
